FAERS Safety Report 4634450-5 (Version None)
Quarter: 2005Q2

REPORT INFORMATION
  Report Type: 
  Country: None (occurrence: None)
  Receive Date: 20050412
  Receipt Date: 20050331
  Transmission Date: 20051028
  Serious: Yes (Death, Life-Threatening, Other)
  Sender: FDA-Public Use
  Company Number: BRO-008066

PATIENT
  Age: 90 Year
  Sex: Female

DRUGS (2)
  1. IOPAMIDOL-300 [Suspect]
     Indication: COMPUTERISED TOMOGRAM
     Dosage: 100 ML
     Route: 042
     Dates: start: 20041127, end: 20041127
  2. IOPAMIDOL-300 [Suspect]
     Indication: GASTRIC CANCER
     Dosage: 100 ML
     Route: 042
     Dates: start: 20041127, end: 20041127

REACTIONS (11)
  - ANAPHYLACTIC REACTION [None]
  - BLOOD PRESSURE DECREASED [None]
  - BRAIN DEATH [None]
  - CARDIO-RESPIRATORY ARREST [None]
  - COUGH [None]
  - DYSPNOEA [None]
  - FOAMING AT MOUTH [None]
  - HEART RATE DECREASED [None]
  - LARYNGEAL OEDEMA [None]
  - LOSS OF CONSCIOUSNESS [None]
  - OBSTRUCTIVE AIRWAYS DISORDER [None]
